FAERS Safety Report 5013070-7 (Version None)
Quarter: 2006Q2

REPORT INFORMATION
  Report Type: 
  Country: None (occurrence: None)
  Receive Date: 20060530
  Receipt Date: 20060214
  Transmission Date: 20061013
  Serious: No
  Sender: FDA-Public Use
  Company Number: US-GLAXOSMITHKLINE-A0593686A

PATIENT
  Age: 43 Year
  Sex: Female

DRUGS (5)
  1. WELLBUTRIN XL [Suspect]
     Indication: DEPRESSION
     Dosage: 150MG PER DAY
     Route: 048
     Dates: start: 20060209, end: 20060212
  2. OXYCONTIN [Concomitant]
  3. METHADONE HCL [Concomitant]
  4. KLONOPIN [Concomitant]
  5. ASPIRIN [Concomitant]

REACTIONS (10)
  - ASTHENIA [None]
  - DRY MOUTH [None]
  - HYPERHIDROSIS [None]
  - INSOMNIA [None]
  - NAUSEA [None]
  - NIGHTMARE [None]
  - PAROSMIA [None]
  - REGURGITATION OF FOOD [None]
  - TINNITUS [None]
  - VOMITING [None]
